FAERS Safety Report 9465311 (Version 1)
Quarter: 2013Q3

REPORT INFORMATION
  Report Type: Spontaneous
  Country: CA (occurrence: CA)
  Receive Date: 20130820
  Receipt Date: 20130820
  Transmission Date: 20140515
  Serious: Yes (Other)
  Sender: FDA-Public Use
  Company Number: CA-AMGEN-CANSP2013056920

PATIENT
  Age: 64 Year
  Sex: Female

DRUGS (1)
  1. PROLIA [Suspect]
     Indication: OSTEOPOROSIS POSTMENOPAUSAL
     Route: 065

REACTIONS (6)
  - Plasma cell myeloma [Unknown]
  - Activities of daily living impaired [Unknown]
  - Malaise [Unknown]
  - Bone pain [Unknown]
  - Depressed mood [Unknown]
  - General physical health deterioration [Unknown]
